FAERS Safety Report 9397922 (Version 1)
Quarter: 2013Q3

REPORT INFORMATION
  Report Type: Spontaneous
  Country: TR (occurrence: None)
  Receive Date: 20130709
  Receipt Date: 20130709
  Transmission Date: 20140515
  Serious: Yes (Other)
  Sender: FDA-Public Use
  Company Number: TR-ALKEM-000105

PATIENT
  Sex: 0

DRUGS (1)
  1. LAMOTRIGINE (LAMOTRIGINE) [Suspect]
     Indication: ATTENTION DEFICIT/HYPERACTIVITY DISORDER

REACTIONS (1)
  - Sleep disorder [None]
